FAERS Safety Report 25300594 (Version 1)
Quarter: 2025Q2

REPORT INFORMATION
  Report Type: Spontaneous
  Country: US (occurrence: None)
  Receive Date: 20250509
  Receipt Date: 20250509
  Transmission Date: 20250716
  Serious: Yes (Death)
  Sender: FDA-CTU
  Company Number: None

PATIENT
  Age: 70 Year
  Sex: Female

DRUGS (14)
  1. TADALAFIL [Suspect]
     Active Substance: TADALAFIL
     Indication: Pulmonary hypertension
     Dosage: 20MG QD ORAL
     Route: 048
     Dates: start: 20190911, end: 20250417
  2. AMBRISENTAN [Suspect]
     Active Substance: AMBRISENTAN
  3. MELOXICAM [Concomitant]
     Active Substance: MELOXICAM
  4. TYLENOL [Concomitant]
     Active Substance: ACETAMINOPHEN
  5. FUROSEMIDE [Concomitant]
     Active Substance: FUROSEMIDE
  6. METOLAZONE [Concomitant]
     Active Substance: METOLAZONE
  7. potassium chlroide [Concomitant]
  8. ATORVASTATIN [Concomitant]
     Active Substance: ATORVASTATIN
  9. ALENDRONATE [Concomitant]
     Active Substance: ALENDRONATE SODIUM
  10. COSOPT [Concomitant]
     Active Substance: DORZOLAMIDE HYDROCHLORIDE\TIMOLOL MALEATE
  11. volataren gel [Concomitant]
  12. TAC top oint [Concomitant]
  13. VITAMINS [Concomitant]
     Active Substance: VITAMINS
  14. calcium-mg-zinic-vit D [Concomitant]

REACTIONS (2)
  - Cardiac arrest [None]
  - Cardiogenic shock [None]

NARRATIVE: CASE EVENT DATE: 20250413
